FAERS Safety Report 6056918-X (Version None)
Quarter: 2009Q1

REPORT INFORMATION
  Report Type: 
  Country: None (occurrence: None)
  Receive Date: 20090129
  Receipt Date: 20090122
  Transmission Date: 20090719
  Serious: Yes (Hospitalization)
  Sender: FDA-Public Use
  Company Number: B0556422A

PATIENT

DRUGS (1)
  1. LAMICTAL [Suspect]
     Route: 065

REACTIONS (3)
  - COMA [None]
  - HOSPITALISATION [None]
  - POISONING [None]
